FAERS Safety Report 6035338-8 (Version None)
Quarter: 2009Q1

REPORT INFORMATION
  Report Type: 
  Country: None (occurrence: None)
  Receive Date: 20090113
  Receipt Date: 20090108
  Transmission Date: 20090719
  Serious: Yes (Hospitalization)
  Sender: FDA-Public Use
  Company Number: DE-SP-2008-02992

PATIENT
  Age: 78 Year
  Sex: Male

DRUGS (3)
  1. IMMUCYST [Suspect]
     Indication: BLADDER CANCER
     Dosage: NOT REPORTED
     Route: 043
  2. MICTONORM UNO [Concomitant]
  3. IBUPROFEN [Concomitant]
     Dosage: WHEN NEEDED

REACTIONS (6)
  - DYSURIA [None]
  - FLANK PAIN [None]
  - HYDRONEPHROSIS [None]
  - URETERIC STENOSIS [None]
  - URINARY TRACT INFECTION [None]
  - URINARY TRACT OBSTRUCTION [None]
